FAERS Safety Report 10196563 (Version 2)
Quarter: 2014Q2

REPORT INFORMATION
  Report Type: Spontaneous
  Country: JP (occurrence: JP)
  Receive Date: 20140527
  Receipt Date: 20140530
  Transmission Date: 20141212
  Serious: No
  Sender: FDA-Public Use
  Company Number: JP-OTSUKA-JP-2014-14244

PATIENT
  Age: 70 Year
  Sex: Male

DRUGS (2)
  1. SAMSCA [Suspect]
     Indication: OEDEMA DUE TO CARDIAC DISEASE
     Route: 048
  2. DIURETICS [Concomitant]
     Route: 065

REACTIONS (1)
  - Blood sodium decreased [Unknown]
